FAERS Safety Report 25149708 (Version 2)
Quarter: 2025Q2

REPORT INFORMATION
  Report Type: Spontaneous
  Country: US (occurrence: US)
  Receive Date: 20250402
  Receipt Date: 20250424
  Transmission Date: 20250716
  Serious: No
  Sender: PFIZER
  Company Number: US-PFIZER INC-PV202500038360

PATIENT
  Age: 87 Year
  Sex: Female

DRUGS (2)
  1. CIBINQO [Interacting]
     Active Substance: ABROCITINIB
     Dosage: 1 DF, DAILY (1 TABLET)
  2. PLAVIX [Interacting]
     Active Substance: CLOPIDOGREL BISULFATE

REACTIONS (3)
  - Haemorrhage [Unknown]
  - Labelled drug-drug interaction medication error [Unknown]
  - Contraindicated product administered [Unknown]
